FAERS Safety Report 17313021 (Version 2)
Quarter: 2020Q2

REPORT INFORMATION
  Report Type: Spontaneous
  Country: US (occurrence: US)
  Receive Date: 20200124
  Receipt Date: 20200422
  Transmission Date: 20200713
  Serious: No
  Sender: FDA-Public Use
  Company Number: US-AUROBINDO-AUR-APL-2019-105894

PATIENT
  Age: 68 Year
  Sex: Female
  Weight: 52.16 kg

DRUGS (2)
  1. MOXIFLOXACIN OPHTHALMIC SOLUTION USP 0.5 % W/V [Suspect]
     Active Substance: MOXIFLOXACIN
     Indication: CATARACT
     Dosage: 3 TIMES A DAY (FOR 1 WEEK)
     Route: 065
     Dates: start: 20191123, end: 20191202
  2. PREDNISONE. [Concomitant]
     Active Substance: PREDNISONE
     Indication: PRODUCT USED FOR UNKNOWN INDICATION
     Dosage: UNK
     Route: 048

REACTIONS (3)
  - Drug ineffective [Recovered/Resolved]
  - Hypersensitivity [Recovered/Resolved]
  - Impaired healing [Recovered/Resolved]

NARRATIVE: CASE EVENT DATE: 20191125
